FAERS Safety Report 24020907 (Version 3)
Quarter: 2025Q4

REPORT INFORMATION
  Report Type: Report from Study
  Country: CH (occurrence: CH)
  Receive Date: 20240627
  Receipt Date: 20251025
  Transmission Date: 20260117
  Serious: Yes (Hospitalization, Other)
  Sender: ABBVIE
  Company Number: CH-ABBVIE-5810054

PATIENT
  Age: 71 Year
  Sex: Male
  Weight: 137 kg

DRUGS (29)
  1. SKYRIZI [Suspect]
     Active Substance: RISANKIZUMAB-RZAA
     Indication: Psoriasis
     Route: 058
     Dates: start: 20230405, end: 20230503
  2. CHOLECALCIFEROL [Concomitant]
     Active Substance: CHOLECALCIFEROL
     Indication: Product used for unknown indication
     Dosage: 0.2ML, VITAMIN D3 STREULI 4000 IU/ML
     Route: 048
  3. HERBALS [Concomitant]
     Active Substance: HERBALS
     Indication: Product used for unknown indication
     Dosage: CONSTIPATION SYRUP
  4. ASCORBIC ACID\MINERALS\VITAMINS [Concomitant]
     Active Substance: ASCORBIC ACID\MINERALS\VITAMINS
     Indication: Product used for unknown indication
  5. ALBUTEROL SULFATE\IPRATROPIUM BROMIDE [Concomitant]
     Active Substance: ALBUTEROL SULFATE\IPRATROPIUM BROMIDE
     Indication: Product used for unknown indication
     Dosage: INHALATION SOLUTION 1+0.2MG/ML, FREQUENCY: 1-0-1- 1
  6. SEROQUEL [Concomitant]
     Active Substance: QUETIAPINE FUMARATE
     Indication: Product used for unknown indication
     Dosage: FREQUENCY TEXT: 1-1-1-1
     Dates: start: 202307
  7. MOVICOL [Concomitant]
     Active Substance: POLYETHYLENE GLYCOL 3350\POTASSIUM CHLORIDE\SODIUM BICARBONATE\SODIUM CHLORIDE
     Indication: Product used for unknown indication
     Dosage: 1 PIECE, 3 TIMES PER DAY
  8. ENALAPRIL MALEATE [Concomitant]
     Active Substance: ENALAPRIL MALEATE
     Indication: Product used for unknown indication
     Route: 048
  9. MAGNESIUM ASPARTATE HYDROCHLORIDE [Concomitant]
     Active Substance: MAGNESIUM ASPARTATE HYDROCHLORIDE
     Indication: Product used for unknown indication
     Dosage: 1 POUCH, 10 MMOL
  10. LISINOPRIL [Concomitant]
     Active Substance: LISINOPRIL
     Indication: Product used for unknown indication
     Route: 048
  11. METAMIZOLE [Concomitant]
     Active Substance: METAMIZOLE
     Indication: Product used for unknown indication
     Dosage: SINTETICA 1 G/2ML, FREQUENCY: 4 TIMES PER DAY.
     Route: 042
  12. Amlodipinum [Concomitant]
     Indication: Product used for unknown indication
     Dosage: FREQUENCY: 2 TIMES PER DAY.
     Route: 048
  13. VICTOZA [Concomitant]
     Active Substance: LIRAGLUTIDE
     Indication: Obesity
  14. ALDACTONE [Concomitant]
     Active Substance: SPIRONOLACTONE
     Indication: Product used for unknown indication
     Dosage: 1, FREQUENCY: 3 TIMES PER DAY.
     Route: 048
  15. ALDACTONE [Concomitant]
     Active Substance: SPIRONOLACTONE
     Indication: Product used for unknown indication
     Route: 048
  16. INSULIN ASPART [Concomitant]
     Active Substance: INSULIN ASPART
     Indication: Type 2 diabetes mellitus
     Dosage: INSULIN NOVORAPID FLEXTOUCH, 3 TIMES PER DAY
     Route: 058
  17. Imazol [Concomitant]
     Indication: Product used for unknown indication
     Dosage: IMAZOL CREAM 10+2.5MG/G
     Route: 003
  18. METAMIZOLE [Concomitant]
     Active Substance: METAMIZOLE
     Indication: Product used for unknown indication
     Dosage: NOVAMINE SULFONE SINTETICA 1 G/2ML, 4 TIMES PER DAY
     Route: 042
  19. LANTUS [Concomitant]
     Active Substance: INSULIN GLARGINE
     Indication: Type 2 diabetes mellitus
     Dosage: 100 E/ML
     Route: 058
  20. LANTUS [Concomitant]
     Active Substance: INSULIN GLARGINE
     Indication: Type 2 diabetes mellitus
     Dosage: 100 E/ML
     Route: 058
  21. ROSUVASTATIN CALCIUM [Concomitant]
     Active Substance: ROSUVASTATIN CALCIUM
     Indication: Product used for unknown indication
     Route: 048
  22. TORSEMIDE [Concomitant]
     Active Substance: TORSEMIDE
     Indication: Product used for unknown indication
     Dosage: FREQUENCY: 2 TIMES PER DAY.
     Route: 048
  23. DAFALGAN [Concomitant]
     Active Substance: ACETAMINOPHEN
     Indication: Product used for unknown indication
     Dosage: 1/2 PIECE
     Route: 048
  24. PROPOFOL [Concomitant]
     Active Substance: PROPOFOL
     Indication: Product used for unknown indication
     Dates: start: 202307, end: 202307
  25. ASPIRIN [Concomitant]
     Active Substance: ASPIRIN
     Indication: Product used for unknown indication
     Route: 048
  26. Cignolin [Concomitant]
     Indication: Psoriasis
  27. GOSERELIN [Concomitant]
     Active Substance: GOSERELIN
     Indication: Prostate cancer
  28. PULMICORT TURBUHALER [Concomitant]
     Active Substance: BUDESONIDE
     Indication: Product used for unknown indication
     Dosage: 0.25MG/ML ?FREQUENCY TEXT: 1-0-1-0
  29. XIGDUO XR [Concomitant]
     Active Substance: DAPAGLIFLOZIN PROPANEDIOL\METFORMIN HYDROCHLORIDE
     Indication: Product used for unknown indication
     Dosage: 1 PC, 5 MG/1000 MG
     Route: 048

REACTIONS (86)
  - Sepsis [Recovered/Resolved]
  - Hypoglycaemia [Unknown]
  - Aggression [Not Recovered/Not Resolved]
  - Hypoxia [Unknown]
  - Erythema [Unknown]
  - Papilloma [Unknown]
  - Pulmonary oedema [Unknown]
  - Oxygen saturation decreased [Unknown]
  - Escherichia urinary tract infection [Unknown]
  - Gait disturbance [Unknown]
  - Tachypnoea [Unknown]
  - Panniculitis [Unknown]
  - Hepatic steatosis [Unknown]
  - Diabetic nephropathy [Unknown]
  - Pneumonia aspiration [Unknown]
  - Urinary incontinence [Unknown]
  - Acute respiratory failure [Unknown]
  - Visual impairment [Unknown]
  - Streptococcal bacteraemia [Unknown]
  - Abnormal behaviour [Unknown]
  - Inflammatory marker increased [Unknown]
  - Psychomotor hyperactivity [Unknown]
  - Onychomycosis [Unknown]
  - Beta haemolytic streptococcal infection [Unknown]
  - Pain in extremity [Unknown]
  - Pain [Unknown]
  - Fall [Unknown]
  - Disorientation [Not Recovered/Not Resolved]
  - Arterial disorder [Unknown]
  - Feeling hot [Unknown]
  - Fungal infection [Unknown]
  - Delirium [Unknown]
  - Peripheral venous disease [Unknown]
  - Erysipelas [Unknown]
  - Agitation [Unknown]
  - Endocarditis [Unknown]
  - Syncope [Unknown]
  - Gastrointestinal angiodysplasia [Unknown]
  - Deafness [Unknown]
  - Dermatitis [Unknown]
  - Craniocerebral injury [Unknown]
  - Malnutrition [Unknown]
  - Vitamin D deficiency [Unknown]
  - Dementia [Unknown]
  - Polyneuropathy [Unknown]
  - Hypoalbuminaemia [Unknown]
  - Obstructive sleep apnoea syndrome [Not Recovered/Not Resolved]
  - Microalbuminuria [Unknown]
  - Pickwickian syndrome [Unknown]
  - Hepatosplenomegaly [Unknown]
  - Platelet count increased [Unknown]
  - Blood creatine phosphokinase decreased [Unknown]
  - Obesity [Unknown]
  - Blood pH abnormal [Unknown]
  - Pollakiuria [Unknown]
  - Blood sodium decreased [Unknown]
  - Blood potassium increased [Unknown]
  - Oedema peripheral [Not Recovered/Not Resolved]
  - Base excess abnormal [Unknown]
  - Blood creatinine increased [Unknown]
  - Mean cell haemoglobin decreased [Unknown]
  - Urethral injury [Unknown]
  - Acute kidney injury [Unknown]
  - Protein urine present [Unknown]
  - Haematuria [Not Recovered/Not Resolved]
  - PO2 abnormal [Unknown]
  - Delusion [Not Recovered/Not Resolved]
  - White blood cells urine positive [Unknown]
  - Blood chloride increased [Unknown]
  - Urinary tract infection [Unknown]
  - Venous oxygen saturation decreased [Unknown]
  - Stasis dermatitis [Unknown]
  - C-reactive protein increased [Unknown]
  - Red blood cells urine positive [Unknown]
  - Glomerular filtration rate decreased [Unknown]
  - Hypertension [Unknown]
  - Urinary retention [Unknown]
  - Calcium ionised increased [Unknown]
  - Cardiac failure [Unknown]
  - Haemoglobin decreased [Unknown]
  - Blood glucose increased [Unknown]
  - Atelectasis [Unknown]
  - Restlessness [Unknown]
  - Beta haemolytic streptococcal infection [Unknown]
  - Blood urea abnormal [Unknown]
  - Haematocrit abnormal [Unknown]

NARRATIVE: CASE EVENT DATE: 20230101
